FAERS Safety Report 18747267 (Version 2)
Quarter: 2022Q2

REPORT INFORMATION
  Report Type: Spontaneous
  Country: US (occurrence: US)
  Receive Date: 20210115
  Receipt Date: 20220407
  Transmission Date: 20220721
  Serious: Yes (Other)
  Sender: FDA-Public Use
  Company Number: US-GLAXOSMITHKLINE-US2021GSK010140

PATIENT
  Sex: Male

DRUGS (12)
  1. RANITIDINE [Suspect]
     Active Substance: RANITIDINE
     Indication: Hyperchlorhydria
     Dosage: 75 MG, QD
  2. RANITIDINE [Suspect]
     Active Substance: RANITIDINE
     Dosage: 75 MG, QD
     Dates: start: 201106, end: 202003
  3. ZANTAC [Suspect]
     Active Substance: RANITIDINE HYDROCHLORIDE
     Indication: Hyperchlorhydria
     Dosage: 75 MG, QD
     Dates: start: 201101, end: 202003
  4. ZANTAC [Suspect]
     Active Substance: RANITIDINE HYDROCHLORIDE
     Dosage: 75 MG, QD
     Dates: start: 201101, end: 202003
  5. ZANTAC [Suspect]
     Active Substance: RANITIDINE HYDROCHLORIDE
     Indication: Hyperchlorhydria
     Dosage: 75 MG, QD
     Dates: start: 201101, end: 202003
  6. ZANTAC [Suspect]
     Active Substance: RANITIDINE HYDROCHLORIDE
     Dosage: 75 MG, QD
     Dates: start: 201101, end: 202003
  7. RANITIDINE [Suspect]
     Active Substance: RANITIDINE
     Indication: Hyperchlorhydria
     Dosage: 75 MG, QD
     Dates: start: 201101, end: 202003
  8. RANITIDINE [Suspect]
     Active Substance: RANITIDINE
     Dosage: 75 MG, QD
     Dates: start: 201101, end: 202003
  9. RANITIDINE [Suspect]
     Active Substance: RANITIDINE
     Indication: Hyperchlorhydria
     Dosage: UNKNOWN AT THIS TIME PRESCRIPTION
  10. RANITIDINE [Suspect]
     Active Substance: RANITIDINE
     Dosage: 75 MG, QD
     Dates: start: 201106, end: 202003
  11. ZANTAC [Suspect]
     Active Substance: RANITIDINE HYDROCHLORIDE
     Indication: Hyperchlorhydria
     Dosage: 75 MG, QD
     Dates: start: 201101, end: 202003
  12. ZANTAC [Suspect]
     Active Substance: RANITIDINE HYDROCHLORIDE
     Dosage: UNK

REACTIONS (1)
  - Bladder cancer [Unknown]
